FAERS Safety Report 24428087 (Version 1)
Quarter: 2024Q4

REPORT INFORMATION
  Report Type: Spontaneous
  Country: KR (occurrence: KR)
  Receive Date: 20241011
  Receipt Date: 20241011
  Transmission Date: 20250115
  Serious: Yes (Hospitalization)
  Sender: SAMSUNG BIOEPIS
  Company Number: KR-SAMSUNG BIOEPIS-SB-2024-30132

PATIENT
  Age: 69 Year
  Sex: Male
  Weight: 65.6 kg

DRUGS (22)
  1. TRASTUZUMAB [Suspect]
     Active Substance: TRASTUZUMAB
     Indication: Gallbladder cancer
     Route: 042
     Dates: start: 20240618, end: 20241001
  2. NIVOLUMAB [Suspect]
     Active Substance: NIVOLUMAB
     Indication: Gallbladder cancer
     Route: 042
     Dates: start: 20240618, end: 20241001
  3. GEMCITABINE [Suspect]
     Active Substance: GEMCITABINE
     Indication: Gallbladder cancer
     Route: 042
     Dates: start: 20240618, end: 20241001
  4. CISPLATIN [Suspect]
     Active Substance: CISPLATIN
     Indication: Gallbladder cancer
     Route: 042
     Dates: start: 20240618, end: 20241001
  5. Amosartan XQ [Concomitant]
     Indication: Product used for unknown indication
     Dosage: 5/100/5/10MG;
     Dates: start: 2022
  6. Godex [Concomitant]
     Indication: Product used for unknown indication
     Dates: start: 20240612
  7. ULTRACET ER SEMI [Concomitant]
     Indication: Product used for unknown indication
     Dosage: PRN;
     Dates: start: 20240528
  8. NORZYME [Concomitant]
     Indication: Product used for unknown indication
     Dosage: PRN;
     Dates: start: 20240612
  9. CNU [Concomitant]
     Indication: Product used for unknown indication
     Dates: start: 20240612
  10. LOPERAMIDE HYDROCHLORIDE [Concomitant]
     Active Substance: LOPERAMIDE HYDROCHLORIDE
     Indication: Product used for unknown indication
     Dosage: PRN;
     Dates: start: 20240618
  11. Dulackhan-Easy [Concomitant]
     Indication: Product used for unknown indication
     Dosage: PRN;
     Dates: start: 20240618
  12. Sama Tantum [Concomitant]
     Indication: Product used for unknown indication
     Dosage: PRN;
     Dates: start: 20240618
  13. COMPLEX PHAZYME [Concomitant]
     Indication: Product used for unknown indication
     Dosage: TWO-LAYER TABLET, PRN;
     Dates: start: 20240625
  14. MAGMIL S [Concomitant]
     Indication: Product used for unknown indication
     Dosage: PRN;
     Dates: start: 20240710
  15. LERIZINE [Concomitant]
     Indication: Product used for unknown indication
     Dosage: PRN;
     Dates: start: 20240710
  16. PENIRAMIN [Concomitant]
     Indication: Product used for unknown indication
     Dosage: PRN;
     Dates: start: 20240710
  17. AKYNZEO [Concomitant]
     Indication: Product used for unknown indication
     Dosage: ONCE;
     Dates: start: 20240829
  18. EMEND [Concomitant]
     Active Substance: APREPITANT
     Indication: Product used for unknown indication
     Dosage: PRN;
     Dates: start: 20240618
  19. EMEND [Concomitant]
     Active Substance: APREPITANT
     Dosage: PRN;
     Dates: start: 20240618
  20. ALOXI [Concomitant]
     Active Substance: PALONOSETRON HYDROCHLORIDE
     Indication: Product used for unknown indication
     Dosage: PRN;
     Dates: start: 20240618
  21. DICHLOZID [Concomitant]
     Indication: Product used for unknown indication
     Dates: start: 20240709
  22. COZAAR [Concomitant]
     Active Substance: LOSARTAN POTASSIUM
     Indication: Product used for unknown indication
     Dates: start: 20240709

REACTIONS (2)
  - Cholangitis [Recovered/Resolved]
  - Off label use [Unknown]

NARRATIVE: CASE EVENT DATE: 20240929
